FAERS Safety Report 5662426-8 (Version None)
Quarter: 2008Q1

REPORT INFORMATION
  Report Type: 
  Country: None (occurrence: None)
  Receive Date: 20080313
  Receipt Date: 20080304
  Transmission Date: 20080703
  Serious: Yes (Hospitalization, Other)
  Sender: FDA-Public Use
  Company Number: US-JNJFOC-20080301284

PATIENT
  Sex: Female
  Weight: 117.48 kg

DRUGS (4)
  1. REMICADE [Suspect]
     Dosage: DOSE: 4 VIALS
     Route: 042
  2. REMICADE [Suspect]
     Indication: RHEUMATOID ARTHRITIS
     Dosage: DOSE: 4 VIALS
     Route: 042
  3. FOLIC ACID [Concomitant]
  4. PREDNISONE [Concomitant]

REACTIONS (5)
  - ANAEMIA [None]
  - DIZZINESS [None]
  - DYSPNOEA [None]
  - GASTRIC DISORDER [None]
  - VISION BLURRED [None]
